FAERS Safety Report 20392326 (Version 2)
Quarter: 2022Q1

REPORT INFORMATION
  Report Type: Spontaneous
  Country: US (occurrence: US)
  Receive Date: 20220128
  Receipt Date: 20220330
  Transmission Date: 20220423
  Serious: No
  Sender: FDA-Public Use
  Company Number: US-GLAXOSMITHKLINE-US2022011127

PATIENT
  Sex: Female

DRUGS (1)
  1. FLOVENT DISKUS [Suspect]
     Active Substance: FLUTICASONE PROPIONATE
     Indication: Laryngeal stenosis
     Dosage: 100 UG
     Route: 055
     Dates: start: 2014

REACTIONS (2)
  - Brain operation [Unknown]
  - Off label use [Unknown]

NARRATIVE: CASE EVENT DATE: 20150101
